FAERS Safety Report 13384027 (Version 1)
Quarter: 2017Q1

REPORT INFORMATION
  Report Type: Spontaneous
  Country: US (occurrence: US)
  Receive Date: 20170329
  Receipt Date: 20170329
  Transmission Date: 20170429
  Serious: No
  Sender: FDA-Public Use
  Company Number: US-MAYNE PHARMA-2016MYN002072

PATIENT
  Age: 84 Year
  Sex: Female
  Weight: 54.48 kg

DRUGS (2)
  1. TAMOXIFEN CITRATE. [Suspect]
     Active Substance: TAMOXIFEN CITRATE
     Indication: PROPHYLAXIS
     Route: 065
     Dates: start: 20160316
  2. ANASTROZOLE. [Suspect]
     Active Substance: ANASTROZOLE
     Route: 065

REACTIONS (6)
  - Hot flush [Unknown]
  - Cognitive disorder [Unknown]
  - Adverse event [Unknown]
  - Muscular weakness [Unknown]
  - Pain in extremity [Unknown]
  - Breast cyst [Unknown]

NARRATIVE: CASE EVENT DATE: 201603
